FAERS Safety Report 8320823-6 (Version None)
Quarter: 2012Q2

REPORT INFORMATION
  Report Type: 
  Country: None (occurrence: None)
  Receive Date: 20120430
  Receipt Date: 20120420
  Transmission Date: 20120825
  Serious: Yes (Other)
  Sender: FDA-Public Use
  Company Number: PHHY2012GR034435

PATIENT
  Age: 52 Year
  Sex: Female

DRUGS (2)
  1. CHLORHEXIDINE GLUCONATE [Concomitant]
     Dosage: UNK
  2. ZOLEDRONIC [Suspect]
     Indication: METASTASES TO BONE
     Dosage: UNK

REACTIONS (7)
  - ORAL DISORDER [None]
  - WHITE BLOOD CELL COUNT INCREASED [None]
  - ESCHERICHIA URINARY TRACT INFECTION [None]
  - LIP ULCERATION [None]
  - OSTEONECROSIS OF JAW [None]
  - SKIN LESION [None]
  - ANAEMIA [None]
